FAERS Safety Report 6879486-9 (Version None)
Quarter: 2010Q3

REPORT INFORMATION
  Report Type: 
  Country: None (occurrence: None)
  Receive Date: 20100728
  Receipt Date: 20091221
  Transmission Date: 20110219
  Serious: No
  Sender: FDA-Public Use
  Company Number: US-MYLANLABS-2009S1021856

PATIENT
  Sex: Female

DRUGS (3)
  1. HALOPERIDOL TABLETS, USP [Suspect]
     Indication: MENTAL DISORDER
     Route: 048
  2. HALOPERIDOL TABLETS, USP [Suspect]
     Route: 048
  3. HALOPERIDOL TABLETS, USP [Suspect]
     Route: 048

REACTIONS (1)
  - BREAST ENLARGEMENT [None]
